FAERS Safety Report 9697476 (Version 2)
Quarter: 2013Q4

REPORT INFORMATION
  Report Type: Report from Study
  Country: US (occurrence: US)
  Receive Date: 20131120
  Receipt Date: 20131209
  Transmission Date: 20140711
  Serious: Yes (Death)
  Sender: FDA-Public Use
  Company Number: PHEH2013US024212

PATIENT
  Age: 78 Year
  Sex: Male

DRUGS (1)
  1. GLEEVEC [Suspect]
     Indication: METASTASES TO GASTROINTESTINAL TRACT
     Dosage: 400 MG, DAILY
     Route: 048
     Dates: start: 20130702, end: 20130824

REACTIONS (2)
  - Death [Fatal]
  - Drug ineffective [Unknown]
